FAERS Safety Report 8198484-9 (Version None)
Quarter: 2012Q1

REPORT INFORMATION
  Report Type: 
  Country: None (occurrence: None)
  Receive Date: 20120227
  Receipt Date: 20120113
  Transmission Date: 20120608
  Serious: Yes (Hospitalization)
  Sender: FDA-Public Use
  Company Number: 343055

PATIENT
  Age: 52 Year
  Sex: Female
  Weight: 99.8 kg

DRUGS (8)
  1. LIPITOR [Concomitant]
  2. ALTRAMET /00397401/ (CIMETIDINE) [Concomitant]
  3. VICTOZA [Suspect]
     Indication: TYPE 2 DIABETES MELLITUS
     Dosage: 0.6 MG, QD, SUBCUTANEOUS
     Route: 058
     Dates: start: 20111109, end: 20111117
  4. HYDROCHLOROTHIAZIDE [Concomitant]
  5. METFORMIN HCL [Concomitant]
  6. OMEGA 3 /01334101/ (FISH OIL) [Concomitant]
  7. JANUMET (METFORMIN HYDROCHLORIDE, SITAGLIPTIN PHOSPHATE MONOHYDRATE) [Concomitant]
  8. TOPROL-XL [Concomitant]

REACTIONS (2)
  - DIARRHOEA [None]
  - BLOOD GLUCOSE INCREASED [None]
